FAERS Safety Report 12773385 (Version 1)
Quarter: 2016Q3

REPORT INFORMATION
  Report Type: Spontaneous
  Country: PT (occurrence: PT)
  Receive Date: 20160922
  Receipt Date: 20160922
  Transmission Date: 20161109
  Serious: Yes (Other)
  Sender: FDA-Public Use
  Company Number: PT-TAKEDA-2016TUS016876

PATIENT
  Sex: Female
  Weight: 2.96 kg

DRUGS (2)
  1. BRINTELLIX [Suspect]
     Active Substance: VORTIOXETINE HYDROBROMIDE
     Indication: PERINATAL DEPRESSION
     Dosage: 10 MG, QD
     Route: 064
     Dates: start: 20160222, end: 20160611
  2. ALPRAZOLAM. [Concomitant]
     Active Substance: ALPRAZOLAM
     Indication: PRODUCT USED FOR UNKNOWN INDICATION
     Dosage: 0.5 MG, QD
     Route: 064

REACTIONS (5)
  - Foetal exposure during pregnancy [Unknown]
  - Neonatal respiratory depression [Recovered/Resolved]
  - Meconium aspiration syndrome [Recovered/Resolved]
  - Cardiac murmur [Recovered/Resolved]
  - Neonatal infection [Recovered/Resolved]

NARRATIVE: CASE EVENT DATE: 20160611
